FAERS Safety Report 23099286 (Version 1)
Quarter: 2023Q4

REPORT INFORMATION
  Report Type: Spontaneous
  Country: JP (occurrence: JP)
  Receive Date: 20231024
  Receipt Date: 20231024
  Transmission Date: 20240109
  Serious: Yes (Other)
  Sender: FDA-Public Use
  Company Number: JP-AMGEN-JPNSP2023184559

PATIENT

DRUGS (1)
  1. EVENITY [Suspect]
     Active Substance: ROMOSOZUMAB-AQQG
     Indication: Osteoporosis
     Dosage: UNK, QMO
     Route: 065

REACTIONS (6)
  - Vertebroplasty [Unknown]
  - Spinal fusion surgery [Unknown]
  - Dental care [Unknown]
  - Injection site pain [Unknown]
  - Feeling abnormal [Unknown]
  - Therapy cessation [Unknown]
